FAERS Safety Report 26015300 (Version 1)
Quarter: 2025Q4

REPORT INFORMATION
  Report Type: Spontaneous
  Country: US (occurrence: US)
  Receive Date: 20251109
  Receipt Date: 20251109
  Transmission Date: 20260117
  Serious: No
  Sender: SANOFI AVENTIS
  Company Number: US-SANOFI-02706427

PATIENT

DRUGS (2)
  1. LANTUS [Suspect]
     Active Substance: INSULIN GLARGINE
     Indication: Diabetes mellitus
     Dosage: 65 IU, TID
  2. HUMULIN R [Concomitant]
     Active Substance: INSULIN HUMAN
     Dosage: 40 IU, TID (BEFORE MEALS)

REACTIONS (1)
  - Off label use [Unknown]
